FAERS Safety Report 19947992 (Version 2)
Quarter: 2021Q4

REPORT INFORMATION
  Report Type: Spontaneous
  Country: JP (occurrence: JP)
  Receive Date: 20211013
  Receipt Date: 20211207
  Transmission Date: 20220303
  Serious: Yes (Death, Life-Threatening, Hospitalization, Other)
  Sender: FDA-Public Use
  Company Number: JP-ONO-2021JP025140

PATIENT
  Age: 79 Year
  Sex: Male
  Weight: 52 kg

DRUGS (8)
  1. OPDIVO [Suspect]
     Active Substance: NIVOLUMAB
     Indication: Metastatic renal cell carcinoma
     Dosage: 240 MG, Q2W
     Route: 041
     Dates: start: 20190516, end: 20210401
  2. OPDIVO [Suspect]
     Active Substance: NIVOLUMAB
     Dosage: 480 MILLIGRAM, Q4WK
     Route: 041
     Dates: start: 20210415, end: 20210930
  3. NAFTOPIDIL [Concomitant]
     Active Substance: NAFTOPIDIL
     Indication: Dysuria
     Dosage: 75 MG, EVERYDAY
     Route: 048
     Dates: start: 20140529
  4. ETIZOLAM [Concomitant]
     Active Substance: ETIZOLAM
     Indication: Sleep disorder
     Dosage: 0.5 MG, EVERYDAY
     Route: 048
     Dates: start: 20110714
  5. HERBALS [Concomitant]
     Active Substance: HERBALS
     Indication: Abdominal distension
     Dosage: 2.5 GRAM, Q8H
     Route: 048
     Dates: start: 20110714
  6. AMITIZA [Concomitant]
     Active Substance: LUBIPROSTONE
     Indication: Constipation
     Dosage: 24 MICROGRAM, QD
     Route: 048
     Dates: start: 20180809
  7. ROSUVASTATIN CALCIUM [Concomitant]
     Active Substance: ROSUVASTATIN CALCIUM
     Indication: Dyslipidaemia
     Dosage: 2.5 MILLIGRAM, QOD
     Route: 048
     Dates: start: 20170817
  8. LEVOTHYROXINE SODIUM [Concomitant]
     Active Substance: LEVOTHYROXINE SODIUM
     Indication: Hypothyroidism
     Dosage: 50 MICROGRAM, QD
     Route: 048
     Dates: start: 20110715

REACTIONS (1)
  - Cerebral haemorrhage [Fatal]

NARRATIVE: CASE EVENT DATE: 20211006
